FAERS Safety Report 14607484 (Version 1)
Quarter: 2018Q1

REPORT INFORMATION
  Report Type: Spontaneous
  Country: US (occurrence: US)
  Receive Date: 20180307
  Receipt Date: 20180307
  Transmission Date: 20180509
  Serious: No
  Sender: FDA-Public Use
  Company Number: US-009507513-1802USA002400

PATIENT
  Age: 19 Year
  Sex: Female
  Weight: 56.24 kg

DRUGS (1)
  1. NEXPLANON [Suspect]
     Active Substance: ETONOGESTREL
     Dosage: 1 IMPLANT, LEFT ARM
     Route: 059
     Dates: start: 2014, end: 20180130

REACTIONS (3)
  - Incorrect drug administration duration [Unknown]
  - Device deployment issue [Recovered/Resolved]
  - Complication of device removal [Recovered/Resolved]

NARRATIVE: CASE EVENT DATE: 2014
